FAERS Safety Report 5171102-X (Version None)
Quarter: 2006Q4

REPORT INFORMATION
  Report Type: 
  Country: None (occurrence: None)
  Receive Date: 20061213
  Receipt Date: 20061212
  Transmission Date: 20070319
  Serious: Yes (Hospitalization)
  Sender: FDA-Public Use
  Company Number: FR-GLAXOSMITHKLINE-B0450174A

PATIENT
  Age: 29 Year
  Sex: Male

DRUGS (1)
  1. AUGMENTIN '125' [Suspect]
     Dosage: 2G PER DAY
     Route: 048
     Dates: start: 20061106, end: 20061106

REACTIONS (6)
  - ANGIONEUROTIC OEDEMA [None]
  - ANXIETY [None]
  - DYSPNOEA [None]
  - EYE PRURITUS [None]
  - PAINFUL RESPIRATION [None]
  - PHARYNGEAL ERYTHEMA [None]
